FAERS Safety Report 23433504 (Version 1)
Quarter: 2024Q1

REPORT INFORMATION
  Report Type: Spontaneous
  Country: US (occurrence: US)
  Receive Date: 20240123
  Receipt Date: 20240123
  Transmission Date: 20240410
  Serious: Yes (Other)
  Sender: FDA-Public Use
  Company Number: US-SPECGX-T202400472

PATIENT
  Age: 72 Year
  Sex: Female

DRUGS (2)
  1. POSACONAZOLE [Suspect]
     Active Substance: POSACONAZOLE
     Indication: Keratitis fungal
     Dosage: 300 MILLIGRAM, BID (FOR 2 WEEKS)
     Route: 048
  2. POSACONAZOLE [Suspect]
     Active Substance: POSACONAZOLE
     Dosage: 300 MILLIGRAM, QD (FOR 2 WEEKS)
     Route: 048

REACTIONS (3)
  - Hypertensive urgency [Unknown]
  - Transplant failure [Unknown]
  - Drug effective for unapproved indication [Unknown]
